FAERS Safety Report 12176881 (Version 1)
Quarter: 2016Q1

REPORT INFORMATION
  Report Type: Report from Study
  Country: MX (occurrence: MX)
  Receive Date: 20160315
  Receipt Date: 20160315
  Transmission Date: 20160526
  Serious: Yes (Other)
  Sender: FDA-Public Use
  Company Number: MX-AMGEN-MEXSL2016029539

PATIENT
  Age: 70 Year
  Sex: Female

DRUGS (1)
  1. PROLIA [Suspect]
     Active Substance: DENOSUMAB
     Indication: SPINAL DISORDER
     Dosage: UNK
     Route: 065
     Dates: start: 20130618

REACTIONS (2)
  - Off label use [Unknown]
  - Ileus paralytic [Recovering/Resolving]

NARRATIVE: CASE EVENT DATE: 201602
